FAERS Safety Report 18863771 (Version 2)
Quarter: 2021Q2

REPORT INFORMATION
  Report Type: Report from Study
  Country: JP (occurrence: JP)
  Receive Date: 20210209
  Receipt Date: 20210527
  Transmission Date: 20210717
  Serious: Yes (Other)
  Sender: FDA-Public Use
  Company Number: JP-UCBSA-2021005266

PATIENT
  Age: 19 Year
  Sex: Female
  Weight: 57.5 kg

DRUGS (11)
  1. LACOSAMIDE. [Suspect]
     Active Substance: LACOSAMIDE
     Dosage: 100 MILLIGRAM, 2X/DAY (BID)
     Route: 048
     Dates: start: 20201014, end: 20201103
  2. E KEPPRA [Concomitant]
     Active Substance: LEVETIRACETAM
     Dosage: 1500 MG DAILY
     Route: 048
     Dates: start: 20201203, end: 20210112
  3. LACOSAMIDE. [Suspect]
     Active Substance: LACOSAMIDE
     Dosage: 150 MILLIGRAM, 2X/DAY (BID)
     Route: 048
     Dates: start: 20201202, end: 20210112
  4. EXCEGRAN [Concomitant]
     Active Substance: ZONISAMIDE
     Indication: PARTIAL SEIZURES WITH SECONDARY GENERALISATION
     Dosage: 250 MG DAILY
     Route: 048
     Dates: end: 20201104
  5. E KEPPRA [Concomitant]
     Active Substance: LEVETIRACETAM
     Indication: PARTIAL SEIZURES WITH SECONDARY GENERALISATION
     Dosage: 2000 MG DAILY
     Route: 048
     Dates: end: 20201202
  6. E KEPPRA [Concomitant]
     Active Substance: LEVETIRACETAM
     Dosage: 1000 MG DAILY
     Route: 048
     Dates: start: 20210113
  7. LACOSAMIDE. [Suspect]
     Active Substance: LACOSAMIDE
     Dosage: 75 MILLIGRAM, 2X/DAY (BID)
     Route: 048
     Dates: start: 20201002, end: 20201013
  8. LACOSAMIDE. [Suspect]
     Active Substance: LACOSAMIDE
     Indication: PARTIAL SEIZURES WITH SECONDARY GENERALISATION
     Dosage: 50 MILLIGRAM, ONCE DAILY (QD)
     Route: 048
     Dates: start: 20200828, end: 20201001
  9. LACOSAMIDE. [Suspect]
     Active Substance: LACOSAMIDE
     Dosage: 125 MILLIGRAM, 2X/DAY (BID)
     Route: 048
     Dates: start: 20201104, end: 20201201
  10. LACOSAMIDE. [Suspect]
     Active Substance: LACOSAMIDE
     Dosage: 175 MILLIGRAM, 2X/DAY (BID)
     Route: 048
     Dates: start: 20210113
  11. EXCEGRAN [Concomitant]
     Active Substance: ZONISAMIDE
     Dosage: 200 MG DAILY
     Route: 048
     Dates: start: 20201104

REACTIONS (4)
  - Haemorrhage [Unknown]
  - Fall [Recovered/Resolved]
  - Off label use [Unknown]
  - Seizure [Recovered/Resolved]

NARRATIVE: CASE EVENT DATE: 20200828
